FAERS Safety Report 8335902-7 (Version None)
Quarter: 2012Q2

REPORT INFORMATION
  Report Type: 
  Country: None (occurrence: None)
  Receive Date: 20120501
  Receipt Date: 20120501
  Transmission Date: 20120825
  Serious: Yes (Hospitalization)
  Sender: FDA-Public Use
  Company Number: None

PATIENT
  Age: 18 Year
  Sex: Female
  Weight: 61 kg

DRUGS (4)
  1. NITROFURANTOIN [Concomitant]
  2. BACTRIM DS [Suspect]
     Indication: URINARY TRACT INFECTION
     Dosage: ONE TAB BID PO RECENT
     Route: 048
  3. PHENERGAN [Concomitant]
  4. OXYBUTNIN [Concomitant]

REACTIONS (4)
  - PHARYNGEAL DISORDER [None]
  - LIP SWELLING [None]
  - PRURITUS [None]
  - DRUG HYPERSENSITIVITY [None]
